FAERS Safety Report 21142236 (Version 2)
Quarter: 2022Q3

REPORT INFORMATION
  Report Type: Spontaneous
  Country: IT (occurrence: IT)
  Receive Date: 20220728
  Receipt Date: 20220810
  Transmission Date: 20221027
  Serious: Yes (Death, Hospitalization)
  Sender: FDA-Public Use
  Company Number: IT-TEVA-2022-IT-2057686

PATIENT
  Age: 92 Year
  Sex: Female

DRUGS (3)
  1. DIAZEPAM [Suspect]
     Active Substance: DIAZEPAM
     Indication: Homicide
     Route: 065
  2. MORPHINE [Suspect]
     Active Substance: MORPHINE
     Indication: Homicide
     Route: 065
  3. PROPOFOL [Suspect]
     Active Substance: PROPOFOL
     Indication: Homicide
     Route: 042

REACTIONS (4)
  - Septic shock [Fatal]
  - Cardiac disorder [Fatal]
  - Respiratory disorder [Fatal]
  - Toxicity to various agents [Fatal]
